FAERS Safety Report 7619908-9 (Version None)
Quarter: 2011Q3

REPORT INFORMATION
  Report Type: 
  Country: None (occurrence: None)
  Receive Date: 20110719
  Receipt Date: 20110711
  Transmission Date: 20111222
  Serious: Yes (Other)
  Sender: FDA-Public Use
  Company Number: US-ELI_LILLY_AND_COMPANY-US201107002762

PATIENT
  Sex: Male

DRUGS (3)
  1. LANTUS [Concomitant]
     Indication: TYPE 2 DIABETES MELLITUS
  2. BYETTA [Suspect]
     Indication: TYPE 2 DIABETES MELLITUS
     Dosage: 5 UG, BID
     Route: 058
     Dates: start: 20080701, end: 20110401
  3. BYETTA [Suspect]
     Dosage: 5 UG, BID
     Route: 058

REACTIONS (4)
  - WEIGHT DECREASED [None]
  - ARTERIAL OCCLUSIVE DISEASE [None]
  - ARTERIAL DISORDER [None]
  - CARDIAC DISORDER [None]
